FAERS Safety Report 7930206-6 (Version None)
Quarter: 2011Q4

REPORT INFORMATION
  Report Type: 
  Country: None (occurrence: None)
  Receive Date: 20111121
  Receipt Date: 20111108
  Transmission Date: 20120403
  Serious: Yes (Other)
  Sender: FDA-Public Use
  Company Number: IT-NOVOPROD-337647

PATIENT

DRUGS (9)
  1. FLUVASTATINA [Concomitant]
  2. ASPIRIN [Concomitant]
  3. VICTOZA [Suspect]
     Indication: PRODUCT USED FOR UNKNOWN INDICATION
     Dosage: UNK
     Route: 058
     Dates: start: 20110601, end: 20110613
  4. METFORMIN HCL [Concomitant]
     Dosage: 1.5 G, QD
     Route: 048
  5. DICLOFENAC SODIUM [Concomitant]
  6. AMLODIPINA                         /00972401/ [Concomitant]
  7. CANDESARTAN CILEXETIL AND HYDROCHLOROTHIAZIDE [Concomitant]
  8. DOXAZOSINA [Concomitant]
  9. LORAZEPAM [Concomitant]

REACTIONS (3)
  - PALPITATIONS [None]
  - CHEST PAIN [None]
  - MALAISE [None]
